FAERS Safety Report 23190187 (Version 1)
Quarter: 2023Q4

REPORT INFORMATION
  Report Type: Report from Study
  Country: US (occurrence: US)
  Receive Date: 20231116
  Receipt Date: 20231116
  Transmission Date: 20240109
  Serious: Yes (Hospitalization)
  Sender: FDA-Public Use
  Company Number: US-JNJFOC-20231125638

PATIENT
  Age: 4 Decade
  Sex: Female

DRUGS (2)
  1. SPRAVATO [Suspect]
     Active Substance: ESKETAMINE
     Indication: Depression
     Dosage: ^56 MG, 6 TOTAL DOSES^
     Dates: start: 20221019, end: 20221109
  2. SPRAVATO [Suspect]
     Active Substance: ESKETAMINE
     Dosage: ^84 MG, 19 TOTAL DOSES^
     Dates: start: 20221123, end: 20230707

REACTIONS (1)
  - Hospitalisation [Unknown]
